FAERS Safety Report 14015302 (Version 2)
Quarter: 2017Q4

REPORT INFORMATION
  Report Type: Other
  Country: CA (occurrence: CA)
  Receive Date: 20170927
  Receipt Date: 20171107
  Transmission Date: 20180321
  Serious: Yes (Other)
  Sender: FDA-Public Use
  Company Number: CA-APOTEX-2017AP018665

PATIENT
  Age: 3 Year
  Sex: Male

DRUGS (1)
  1. APO-FLUCONAZOLE [Suspect]
     Active Substance: FLUCONAZOLE
     Indication: CUTANEOUS LEISHMANIASIS
     Dosage: 100 MG, UNK
     Route: 048

REACTIONS (3)
  - Cutaneous leishmaniasis [Recovering/Resolving]
  - Treatment failure [Recovering/Resolving]
  - Product use issue [Recovering/Resolving]
